FAERS Safety Report 11633116 (Version 1)
Quarter: 2015Q4

REPORT INFORMATION
  Report Type: Spontaneous
  Country: US (occurrence: None)
  Receive Date: 20151014
  Receipt Date: 20151014
  Transmission Date: 20160304
  Serious: Yes (Other)
  Sender: FDA-Public Use
  Company Number: None

PATIENT
  Age: 58 Year
  Sex: Female
  Weight: 79.38 kg

DRUGS (3)
  1. CALCIUM [Concomitant]
     Active Substance: CALCIUM
  2. LEVAQUIN [Suspect]
     Active Substance: LEVOFLOXACIN
     Indication: PRODUCT USED FOR UNKNOWN INDICATION
     Route: 042
  3. CHAMOMILE TEA [Concomitant]
     Active Substance: MATRICARIA RECUTITA

REACTIONS (2)
  - Arthralgia [None]
  - Neuropathy peripheral [None]

NARRATIVE: CASE EVENT DATE: 20081218
